FAERS Safety Report 6725571-1 (Version None)
Quarter: 2010Q2

REPORT INFORMATION
  Report Type: 
  Country: None (occurrence: None)
  Receive Date: 20100514
  Receipt Date: 20100504
  Transmission Date: 20101027
  Serious: Yes (Other)
  Sender: FDA-Public Use
  Company Number: US-PFIZER INC-2010056723

PATIENT
  Sex: Female

DRUGS (2)
  1. PROVERA [Suspect]
     Dosage: UNK
     Dates: start: 20100503
  2. WELLBUTRIN [Suspect]
     Dosage: UNK
     Dates: start: 20100504

REACTIONS (2)
  - ABNORMAL BEHAVIOUR [None]
  - DYSARTHRIA [None]
